FAERS Safety Report 6036393-1 (Version None)
Quarter: 2009Q1

REPORT INFORMATION
  Report Type: 
  Country: None (occurrence: None)
  Receive Date: 20090112
  Receipt Date: 20090107
  Transmission Date: 20090719
  Serious: Yes (Death, Hospitalization)
  Sender: FDA-Public Use
  Company Number: US025011

PATIENT
  Age: 62 Year
  Sex: Male

DRUGS (3)
  1. TREANDA [Suspect]
     Indication: CHRONIC LYMPHOCYTIC LEUKAEMIA
     Dosage: 100 MG QD INTRAVENOUS
     Route: 042
     Dates: start: 20081022, end: 20081022
  2. TREANDA [Suspect]
     Indication: CHRONIC LYMPHOCYTIC LEUKAEMIA
     Dosage: 100 MG QD INTRAVENOUS
     Route: 042
     Dates: start: 20081029, end: 20081029
  3. RITUXAN [Concomitant]

REACTIONS (3)
  - CHRONIC LYMPHOCYTIC LEUKAEMIA [None]
  - HAEMOLYTIC ANAEMIA [None]
  - MALIGNANT NEOPLASM PROGRESSION [None]
